FAERS Safety Report 25063624 (Version 1)
Quarter: 2025Q1

REPORT INFORMATION
  Report Type: Spontaneous
  Country: US (occurrence: None)
  Receive Date: 20250310
  Receipt Date: 20250310
  Transmission Date: 20250408
  Serious: Yes (Life-Threatening, Hospitalization)
  Sender: FDA-CTU
  Company Number: None

PATIENT
  Age: 75 Year
  Sex: Male
  Weight: 104 kg

DRUGS (1)
  1. PROTAMINE SULFATE [Suspect]
     Active Substance: PROTAMINE SULFATE
     Indication: Heparin neutralisation therapy
     Dates: start: 20250130, end: 20250130

REACTIONS (2)
  - Anaphylactic reaction [None]
  - Hypoxia [None]

NARRATIVE: CASE EVENT DATE: 20250130
